FAERS Safety Report 8135688-5 (Version None)
Quarter: 2012Q1

REPORT INFORMATION
  Report Type: 
  Country: None (occurrence: None)
  Receive Date: 20120103
  Receipt Date: 20111103
  Transmission Date: 20120608
  Serious: No
  Sender: FDA-Public Use
  Company Number: AE-2011-003019

PATIENT
  Age: 52 Year
  Sex: Female
  Weight: 81.1939 kg

DRUGS (5)
  1. PROCIRT (ERYTHROPOIETIN) [Concomitant]
  2. INCIVEK [Suspect]
     Dosage: 2250 MG (750 MG, 1 IN 8 HR), ORAL
     Route: 048
     Dates: start: 20110902
  3. NEUPOGEN [Concomitant]
  4. RIBAVIRIN [Concomitant]
  5. PEGASYS [Concomitant]

REACTIONS (7)
  - DRUG DOSE OMISSION [None]
  - MALAISE [None]
  - DIZZINESS [None]
  - ANORECTAL DISCOMFORT [None]
  - PALPITATIONS [None]
  - NERVOUSNESS [None]
  - DIARRHOEA [None]
